FAERS Safety Report 8366296-9 (Version None)
Quarter: 2012Q2

REPORT INFORMATION
  Report Type: 
  Country: None (occurrence: None)
  Receive Date: 20120517
  Receipt Date: 20120509
  Transmission Date: 20120825
  Serious: Yes (Hospitalization, Other)
  Sender: FDA-Public Use
  Company Number: PHEH2012US009805

PATIENT
  Age: 72 Year
  Sex: Female

DRUGS (7)
  1. VALSARTAN [Suspect]
     Dosage: UNK UKN, UNK
  2. CARVEDILOL [Concomitant]
     Dosage: UNK UKN, UNK
  3. METFORMIN HCL [Concomitant]
     Dosage: UNK UKN, UNK
  4. COQ10 [Concomitant]
     Dosage: UNK UKN, UNK
  5. DIOVAN HCT [Suspect]
     Dosage: UNK UKN, UNK
  6. GLYBURIDE [Concomitant]
     Dosage: UNK UKN, UNK
  7. DIOVAN HCT [Suspect]
     Dosage: (320/12.5 MG), UNK

REACTIONS (6)
  - DIVERTICULITIS [None]
  - HYPERTENSION [None]
  - STRESS [None]
  - BREAST CANCER [None]
  - PRODUCT SUBSTITUTION ISSUE [None]
  - JOINT SWELLING [None]
